FAERS Safety Report 21009684 (Version 1)
Quarter: 2022Q2

REPORT INFORMATION
  Report Type: Spontaneous
  Country: US (occurrence: None)
  Receive Date: 20220625
  Receipt Date: 20220625
  Transmission Date: 20220721
  Serious: Yes (unspecified)
  Sender: FDA-Public Use
  Company Number: None

PATIENT
  Age: 35 Year
  Sex: Male
  Weight: 93.15 kg

DRUGS (11)
  1. MONTELUKAST SODIUM [Suspect]
     Active Substance: MONTELUKAST SODIUM
     Indication: Asthma
     Dosage: OTHER QUANTITY : 1 TABLET(S)?FREQUENCY : AT BEDTIME?
     Route: 048
     Dates: start: 20220214, end: 20220624
  2. MONTELUKAST SODIUM [Suspect]
     Active Substance: MONTELUKAST SODIUM
     Indication: Chronic sinusitis
  3. ALBUTEROL [Concomitant]
     Active Substance: ALBUTEROL
  4. FLOVENT HFA [Concomitant]
     Active Substance: FLUTICASONE PROPIONATE
  5. NEXIUM [Concomitant]
     Active Substance: ESOMEPRAZOLE MAGNESIUM
  6. ELIQUIS [Concomitant]
     Active Substance: APIXABAN
  7. MECLIZINE [Concomitant]
     Active Substance: MECLIZINE HYDROCHLORIDE
  8. ZOFRAN [Concomitant]
     Active Substance: ONDANSETRON HYDROCHLORIDE
  9. AMLODIPINE BESYLATE [Concomitant]
     Active Substance: AMLODIPINE BESYLATE
  10. CETIRIZINE [Concomitant]
     Active Substance: CETIRIZINE HYDROCHLORIDE
  11. pseudephedrine [Concomitant]

REACTIONS (2)
  - Upper respiratory tract infection [None]
  - Adverse drug reaction [None]

NARRATIVE: CASE EVENT DATE: 20220602
